FAERS Safety Report 8462039-9 (Version None)
Quarter: 2012Q2

REPORT INFORMATION
  Report Type: 
  Country: None (occurrence: None)
  Receive Date: 20120625
  Receipt Date: 20120615
  Transmission Date: 20120825
  Serious: Yes (Death, Other)
  Sender: FDA-Public Use
  Company Number: JP-ASTRAZENECA-2012SE27860

PATIENT
  Age: 71 Year
  Sex: Male
  Weight: 42.2 kg

DRUGS (11)
  1. SEROQUEL [Suspect]
     Route: 048
     Dates: start: 20120419, end: 20120425
  2. SEROQUEL [Suspect]
     Route: 048
     Dates: start: 20120419, end: 20120425
  3. SERTRALINE HYDROCHLORIDE [Concomitant]
     Indication: DEPRESSIVE SYMPTOM
     Route: 065
     Dates: start: 20120420, end: 20120425
  4. URSO 250 [Concomitant]
     Indication: HEPATIC FUNCTION ABNORMAL
     Dates: start: 20120412, end: 20120425
  5. FUNGIZONE [Concomitant]
     Indication: FUNGAL INFECTION
     Dates: start: 20120410, end: 20120415
  6. SEROQUEL [Suspect]
     Indication: DELIRIUM
     Route: 048
     Dates: start: 20120404, end: 20120416
  7. RISPERDAL [Concomitant]
     Indication: DELIRIUM
     Route: 048
     Dates: start: 20120418, end: 20120425
  8. GASMOTIN [Concomitant]
     Indication: HEPATIC FUNCTION ABNORMAL
     Dates: start: 20120410, end: 20120412
  9. SEROQUEL [Suspect]
     Indication: INSOMNIA
     Route: 048
     Dates: start: 20120404, end: 20120416
  10. DEPAS [Concomitant]
     Indication: INSOMNIA
     Route: 065
     Dates: start: 20120404, end: 20120425
  11. GASMOTIN [Concomitant]
     Indication: GASTROINTESTINAL HYPOMOTILITY
     Dates: start: 20120410, end: 20120412

REACTIONS (5)
  - FUNGAL INFECTION [None]
  - OFF LABEL USE [None]
  - HYPOGLYCAEMIA [None]
  - PNEUMONIA ASPIRATION [None]
  - HEPATIC FUNCTION ABNORMAL [None]
